FAERS Safety Report 12229658 (Version 1)
Quarter: 2016Q1

REPORT INFORMATION
  Report Type: Spontaneous
  Country: US (occurrence: None)
  Receive Date: 20160331
  Receipt Date: 20160331
  Transmission Date: 20160526
  Serious: Yes (Other)
  Sender: FDA-Public Use
  Company Number: None

PATIENT
  Age: 35 Year
  Sex: Female
  Weight: 99.79 kg

DRUGS (2)
  1. JOLIVETTE [Suspect]
     Active Substance: NORETHINDRONE
     Indication: CONTRACEPTION
     Dosage: 28 TABLET(S) ONCE A DAY TAKEN BY MOUTH
     Route: 048
     Dates: start: 20160201, end: 20160304
  2. JOLIVETTE [Suspect]
     Active Substance: NORETHINDRONE
     Indication: MIGRAINE PROPHYLAXIS
     Dosage: 28 TABLET(S) ONCE A DAY TAKEN BY MOUTH
     Route: 048
     Dates: start: 20160201, end: 20160304

REACTIONS (4)
  - Product blister packaging issue [None]
  - Migraine [None]
  - Medication residue present [None]
  - Polymenorrhoea [None]

NARRATIVE: CASE EVENT DATE: 20160213
